FAERS Safety Report 7327114-0 (Version None)
Quarter: 2011Q1

REPORT INFORMATION
  Report Type: 
  Country: None (occurrence: None)
  Receive Date: 20110302
  Receipt Date: 20110217
  Transmission Date: 20110831
  Serious: Yes (Hospitalization)
  Sender: FDA-Public Use
  Company Number: BR-GENENTECH-307204

PATIENT
  Sex: Female
  Weight: 65 kg

DRUGS (9)
  1. CLONAZEPAM [Concomitant]
     Indication: PRODUCT USED FOR UNKNOWN INDICATION
     Dosage: .5 MG, UNK
  2. ACETAMINOPHEN [Concomitant]
     Indication: PREMEDICATION
     Dosage: 750 MG, UNK
  3. OMEPRAZOLE [Concomitant]
     Indication: PRODUCT USED FOR UNKNOWN INDICATION
     Dosage: 20 MG, UNK
  4. RITUXIMAB [Suspect]
     Indication: RHEUMATOID ARTHRITIS
     Dosage: 1000 MG, Q6M
     Route: 042
     Dates: start: 20100401, end: 20100505
  5. METICORTEN [Concomitant]
     Indication: PREMEDICATION
     Dosage: 60 MG, UNK
  6. AZULFIN [Concomitant]
     Indication: PRODUCT USED FOR UNKNOWN INDICATION
     Dosage: UNK
  7. METHYLDOPA [Concomitant]
     Indication: PRODUCT USED FOR UNKNOWN INDICATION
  8. METICORTEN [Concomitant]
     Dosage: 5 MG, UNK
  9. CELESTAMINE TAB [Concomitant]
     Indication: PREMEDICATION
     Dosage: 6 MG, UNK

REACTIONS (6)
  - ABSCESS LIMB [None]
  - OEDEMA PERIPHERAL [None]
  - LIMB OPERATION [None]
  - BONE PAIN [None]
  - IMMUNODEFICIENCY [None]
  - INFLUENZA [None]
